FAERS Safety Report 15891183 (Version 2)
Quarter: 2019Q1

REPORT INFORMATION
  Report Type: Spontaneous
  Country: US (occurrence: US)
  Receive Date: 20190130
  Receipt Date: 20190207
  Transmission Date: 20190417
  Serious: Yes (Other)
  Sender: FDA-Public Use
  Company Number: US-TEVA-2019-US-1004962

PATIENT
  Sex: Female

DRUGS (1)
  1. ADDERALL [Suspect]
     Active Substance: AMPHETAMINE ASPARTATE\AMPHETAMINE SULFATE\DEXTROAMPHETAMINE SACCHARATE\DEXTROAMPHETAMINE SULFATE
     Dosage: 60 MILLIGRAM DAILY;
     Route: 065

REACTIONS (13)
  - Wrist fracture [Unknown]
  - Loss of personal independence in daily activities [Unknown]
  - Dyspnoea [Unknown]
  - Upper limb fracture [Unknown]
  - Vomiting [Unknown]
  - Drug intolerance [Unknown]
  - Dysstasia [Unknown]
  - Immune system disorder [Unknown]
  - Headache [Unknown]
  - Loss of consciousness [Unknown]
  - Malaise [Unknown]
  - Fall [Unknown]
  - Asthenia [Unknown]
